FAERS Safety Report 9298657 (Version 3)
Quarter: 2014Q1

REPORT INFORMATION
  Report Type: Spontaneous
  Country: IT (occurrence: IT)
  Receive Date: 20130516
  Receipt Date: 20140328
  Transmission Date: 20141002
  Serious: Yes (Hospitalization)
  Sender: FDA-Public Use
  Company Number: IT-BRACCO-002527

PATIENT
  Age: 76 Year
  Sex: Male

DRUGS (1)
  1. MULTIHANCE [Suspect]
     Indication: NUCLEAR MAGNETIC RESONANCE IMAGING
     Route: 040
     Dates: start: 20130506

REACTIONS (4)
  - Confusional state [Recovered/Resolved]
  - Hypotension [Recovered/Resolved]
  - Urinary incontinence [Recovered/Resolved]
  - Hypoperfusion [Recovered/Resolved]
